FAERS Safety Report 11885243 (Version 1)
Quarter: 2016Q1

REPORT INFORMATION
  Report Type: Spontaneous
  Country: IL (occurrence: IL)
  Receive Date: 20160104
  Receipt Date: 20160104
  Transmission Date: 20160526
  Serious: Yes (Life-Threatening)
  Sender: FDA-Public Use
  Company Number: IL-GE HEALTHCARE MEDICAL DIAGNOSTICS-VISP-PR-1512S-0516

PATIENT
  Age: 29 Year
  Sex: Female

DRUGS (3)
  1. MINESSE [Concomitant]
     Active Substance: ETHINYL ESTRADIOL\GESTODENE
  2. VISIPAQUE [Suspect]
     Active Substance: IODIXANOL
     Indication: DIAGNOSTIC PROCEDURE
  3. VISIPAQUE [Suspect]
     Active Substance: IODIXANOL
     Indication: APPENDIX DISORDER
     Route: 065
     Dates: start: 20151215, end: 20151215

REACTIONS (4)
  - Dyspnoea [Recovered/Resolved]
  - Erythema [Recovered/Resolved]
  - Rash [Recovered/Resolved]
  - Swelling [Recovered/Resolved]

NARRATIVE: CASE EVENT DATE: 20151215
